FAERS Safety Report 8046145-9 (Version None)
Quarter: 2012Q1

REPORT INFORMATION
  Report Type: 
  Country: None (occurrence: None)
  Receive Date: 20120113
  Receipt Date: 20120109
  Transmission Date: 20120608
  Serious: Yes (Other)
  Sender: FDA-Public Use
  Company Number: GB-COVIDIEN/TYCO HEALTHCARE/MALLINCKRODT-T201200051

PATIENT
  Sex: Female
  Weight: 68 kg

DRUGS (2)
  1. HRCT [Concomitant]
     Indication: HORMONE REPLACEMENT THERAPY
     Dosage: LOW DOSE
     Route: 042
  2. OPTIRAY 160 [Suspect]
     Indication: COMPUTERISED TOMOGRAM
     Dosage: 93 ML, SINGLE
     Route: 042
     Dates: start: 20120104, end: 20120104

REACTIONS (8)
  - PARAESTHESIA [None]
  - HYPERHIDROSIS [None]
  - SNEEZING [None]
  - OEDEMA PERIPHERAL [None]
  - RASH GENERALISED [None]
  - TREMOR [None]
  - LIP SWELLING [None]
  - EYE SWELLING [None]
